FAERS Safety Report 10384494 (Version 2)
Quarter: 2014Q4

REPORT INFORMATION
  Report Type: Spontaneous
  Country: US (occurrence: US)
  Receive Date: 20140814
  Receipt Date: 20141110
  Transmission Date: 20150528
  Serious: No
  Sender: FDA-Public Use
  Company Number: US-009507513-1407USA012853

PATIENT
  Age: 28 Year
  Sex: Female

DRUGS (2)
  1. NEXPLANON [Suspect]
     Active Substance: ETONOGESTREL
     Dosage: STRENGTH: 68MG, DOSE OR AMOUNT: 68MG (1 ROD), UNDER THE SKIN
     Route: 059
     Dates: start: 20140725, end: 20140725
  2. NEXPLANON [Suspect]
     Active Substance: ETONOGESTREL
     Dosage: 2 UNK, UNK
     Route: 059
     Dates: start: 20140725

REACTIONS (2)
  - Complication of device insertion [Recovered/Resolved]
  - Device difficult to use [Recovered/Resolved]

NARRATIVE: CASE EVENT DATE: 20140725
